FAERS Safety Report 9890824 (Version 2)
Quarter: 2014Q2

REPORT INFORMATION
  Report Type: Spontaneous
  Country: IT (occurrence: None)
  Receive Date: 20140210
  Receipt Date: 20140415
  Transmission Date: 20141212
  Serious: Yes (Death, Hospitalization)
  Sender: FDA-Public Use
  Company Number: AUR-APL-2014-01384

PATIENT
  Age: 77 Year
  Sex: Male

DRUGS (7)
  1. AMOXICILLIN [Suspect]
     Indication: UPPER RESPIRATORY TRACT INFECTION
     Route: 048
     Dates: start: 20131203, end: 20131207
  2. SINTROM [Suspect]
     Indication: ATRIAL FIBRILLATION
     Dosage: (1 DOSAGE FORMS, AS REQUIRED), ORAL
     Route: 048
     Dates: start: 20120101, end: 20131209
  3. SUTENT ( SUNITINIB MALATE) [Concomitant]
  4. OMNIC ( TAMSULOSIN HYDROCHLORIDE) [Concomitant]
  5. PARIET ( RABEPRAZOLE SODIUM) [Concomitant]
  6. DELTACORTENE ( PREDNISONE) [Concomitant]
  7. CONTRAMAL ( TRAMADOL HYDROCHLORIDE) [Concomitant]

REACTIONS (5)
  - Hypocoagulable state [None]
  - Haematemesis [None]
  - Drug interaction [None]
  - International normalised ratio increased [None]
  - Cardiac arrest [None]
